FAERS Safety Report 23468247 (Version 1)
Quarter: 2024Q1

REPORT INFORMATION
  Report Type: Spontaneous
  Country: KR (occurrence: KR)
  Receive Date: 20240201
  Receipt Date: 20240201
  Transmission Date: 20240410
  Serious: Yes (Death, Hospitalization, Other)
  Sender: FDA-Public Use
  Company Number: KR-BRISTOL-MYERS SQUIBB COMPANY-2024-016902

PATIENT
  Age: 78 Year
  Sex: Female
  Weight: 40.4 kg

DRUGS (4)
  1. VIDAZA [Suspect]
     Active Substance: AZACITIDINE
     Indication: Acute myeloid leukaemia
     Dates: start: 20220207, end: 20220404
  2. VIDAZA [Suspect]
     Active Substance: AZACITIDINE
     Dates: start: 20220206, end: 20220206
  3. VIDAZA [Suspect]
     Active Substance: AZACITIDINE
     Dates: start: 20220205, end: 20220205
  4. VIDAZA [Suspect]
     Active Substance: AZACITIDINE
     Dates: start: 20220204, end: 20220204

REACTIONS (2)
  - Acute myeloid leukaemia [Fatal]
  - Cerebral infarction [Fatal]

NARRATIVE: CASE EVENT DATE: 20220101
